FAERS Safety Report 23779813 (Version 1)
Quarter: 2024Q2

REPORT INFORMATION
  Report Type: Spontaneous
  Country: US (occurrence: US)
  Receive Date: 20240424
  Receipt Date: 20240424
  Transmission Date: 20240716
  Serious: Yes (Other)
  Sender: FDA-Public Use
  Company Number: US-BRISTOL-MYERS SQUIBB COMPANY-2024-061702

PATIENT
  Age: 61 Year
  Sex: Female

DRUGS (1)
  1. REVLIMID [Suspect]
     Active Substance: LENALIDOMIDE
     Indication: B-cell lymphoma stage II
     Route: 048
     Dates: end: 20240316

REACTIONS (4)
  - Clostridium difficile infection [Unknown]
  - Influenza [Unknown]
  - Sepsis [Unknown]
  - Pneumonia [Unknown]
